FAERS Safety Report 24232791 (Version 1)
Quarter: 2024Q3

REPORT INFORMATION
  Report Type: Spontaneous
  Country: CH (occurrence: CH)
  Receive Date: 20240821
  Receipt Date: 20240821
  Transmission Date: 20241017
  Serious: Yes (Hospitalization, Other)
  Sender: SANOFI AVENTIS
  Company Number: None

PATIENT
  Age: 79 Year
  Sex: Male
  Weight: 61 kg

DRUGS (17)
  1. NIVOLUMAB [Interacting]
     Active Substance: NIVOLUMAB
     Indication: Pleural mesothelioma
     Dosage: 195 MG
     Route: 058
     Dates: start: 20240515, end: 20240515
  2. NIVOLUMAB [Interacting]
     Active Substance: NIVOLUMAB
     Dosage: 195 MG
     Route: 058
     Dates: start: 20240529, end: 20240529
  3. IPILIMUMAB [Interacting]
     Active Substance: IPILIMUMAB
     Dosage: 95 MG
     Route: 058
     Dates: start: 20240515, end: 20240519
  4. IPILIMUMAB [Interacting]
     Active Substance: IPILIMUMAB
     Dosage: 95 MG
     Route: 058
     Dates: start: 20240529, end: 20240529
  5. ARAVA [Interacting]
     Active Substance: LEFLUNOMIDE
     Indication: Undifferentiated spondyloarthritis
     Dosage: UNK
     Route: 048
     Dates: start: 201006
  6. ARAVA [Interacting]
     Active Substance: LEFLUNOMIDE
     Dosage: 10 MG, QD
     Route: 048
     Dates: start: 2021
  7. REMICADE [Interacting]
     Active Substance: INFLIXIMAB
     Indication: Undifferentiated spondyloarthritis
     Dosage: UNK
     Route: 040
     Dates: start: 200802
  8. REMICADE [Interacting]
     Active Substance: INFLIXIMAB
     Dosage: 100 MG
     Route: 040
  9. NOVALGIN (METAMIZOLE SODIUM) [Concomitant]
     Active Substance: METAMIZOLE SODIUM
     Dosage: UNK
     Route: 048
  10. TAMSULOSIN MEPHA [Concomitant]
     Dosage: 0.4 MG, QD (RETARD)
     Route: 048
  11. VITAMIN D3 SPIRIG HC [Concomitant]
     Dosage: 800 IU, QD
     Route: 048
  12. ACETAMINOPHEN\CODEINE PHOSPHATE [Concomitant]
     Active Substance: ACETAMINOPHEN\CODEINE PHOSPHATE
     Dosage: 1 DF (500 MG PARACETAMOL / 30 MG CODEINE PER TABLET (1 {DF})
     Route: 048
  13. BENSERAZIDE HYDROCHLORIDE\LEVODOPA [Concomitant]
     Active Substance: BENSERAZIDE HYDROCHLORIDE\LEVODOPA
     Indication: Parkinson^s disease
     Dosage: 1 DF, TID (100 MG LEVODOPA / 25 MG BENSERAZIDE PER TABLET (1 {DF}))
     Route: 048
     Dates: start: 202401
  14. ELIQUIS [Concomitant]
     Active Substance: APIXABAN
     Indication: Deep vein thrombosis
     Dosage: 2.5 MG, BID
     Route: 048
  15. EXFORGE [Concomitant]
     Active Substance: AMLODIPINE BESYLATE\VALSARTAN
     Indication: Hypertension
     Dosage: 1 DF, QD
     Route: 048
  16. EXFORGE [Concomitant]
     Active Substance: AMLODIPINE BESYLATE\VALSARTAN
     Dosage: UNK
     Route: 048
  17. ATORVASTATIN VIATRIS [Concomitant]
     Dosage: 20 MG, QD
     Route: 048

REACTIONS (1)
  - Pneumonitis [Recovering/Resolving]

NARRATIVE: CASE EVENT DATE: 20240603
